FAERS Safety Report 9355998 (Version 1)
Quarter: 2013Q2

REPORT INFORMATION
  Report Type: Spontaneous
  Country: US (occurrence: US)
  Receive Date: 20130619
  Receipt Date: 20130619
  Transmission Date: 20140414
  Serious: Yes (Other)
  Sender: FDA-Public Use
  Company Number: US-BAYER-2013-075521

PATIENT
  Age: 30 Year
  Sex: Female

DRUGS (3)
  1. YASMIN [Suspect]
     Dosage: UNK
     Dates: start: 20070522, end: 20090328
  2. OCELLA [Suspect]
     Dosage: UNK
     Dates: start: 20070522, end: 20090328
  3. YAZ [Suspect]
     Dosage: UNK
     Dates: start: 20070522, end: 20090328

REACTIONS (8)
  - Pelvic venous thrombosis [None]
  - Ovarian vein thrombosis [None]
  - Injury [None]
  - Pain [None]
  - Emotional distress [None]
  - Depression [None]
  - Fear of death [None]
  - Nervousness [None]
